FAERS Safety Report 5404047-8 (Version None)
Quarter: 2007Q3

REPORT INFORMATION
  Report Type: 
  Country: None (occurrence: None)
  Receive Date: 20070730
  Receipt Date: 20060418
  Transmission Date: 20080115
  Serious: Yes (Death, Hospitalization)
  Sender: FDA-Public Use
  Company Number: 6029660

PATIENT
  Age: 73 Year
  Sex: Male

DRUGS (2)
  1. AMIODARONE HCL [Suspect]
     Indication: DRUG USE FOR UNKNOWN INDICATION
     Dosage: 200 MG (200 MG, 5 X 250 MG/DAY PER WEEK)
  2. UNSPECIFIED STEROIDS [Concomitant]

REACTIONS (14)
  - ACUTE RESPIRATORY DISTRESS SYNDROME [None]
  - ACUTE RESPIRATORY FAILURE [None]
  - CANDIDIASIS [None]
  - CATHETER RELATED INFECTION [None]
  - DRUG TOXICITY [None]
  - DRUG WITHDRAWAL SYNDROME [None]
  - IDIOPATHIC PULMONARY FIBROSIS [None]
  - NO THERAPEUTIC RESPONSE [None]
  - OPTIC NEUROPATHY [None]
  - PAPILLOEDEMA [None]
  - PULMONARY FIBROSIS [None]
  - PULMONARY TOXICITY [None]
  - SEPTIC SHOCK [None]
  - STAPHYLOCOCCAL INFECTION [None]
